FAERS Safety Report 22844525 (Version 2)
Quarter: 2023Q4

REPORT INFORMATION
  Report Type: Spontaneous
  Country: US (occurrence: US)
  Receive Date: 20230821
  Receipt Date: 20231010
  Transmission Date: 20240110
  Serious: Yes (Death, Hospitalization)
  Sender: FDA-Public Use
  Company Number: US-AMNEAL PHARMACEUTICALS-2023-AMRX-02881

PATIENT
  Age: 81 Year
  Sex: Male
  Weight: 103.4 kg

DRUGS (3)
  1. RYTARY [Suspect]
     Active Substance: CARBIDOPA\LEVODOPA
     Indication: Product used for unknown indication
     Dosage: 61.25/245MG, 2 CAPSULES, 4 /DAY (5 HOURS APART AT 7AM, NOON, 5PM, AND 10PM)
     Route: 048
  2. RYTARY [Suspect]
     Active Substance: CARBIDOPA\LEVODOPA
     Dosage: 61.25/245MG, 2 CAPSULES, 1 /DAY (EVERY NIGHT AT BEDTIME)
     Route: 048
     Dates: start: 20230306
  3. ONGENTYS [Concomitant]
     Active Substance: OPICAPONE
     Indication: Product used for unknown indication
     Dosage: 1 CAPSULES, 1 /DAY
     Route: 065

REACTIONS (2)
  - COVID-19 [Fatal]
  - Parkinson^s disease [Fatal]

NARRATIVE: CASE EVENT DATE: 20230809
